FAERS Safety Report 21296687 (Version 2)
Quarter: 2022Q3

REPORT INFORMATION
  Report Type: Spontaneous
  Country: TW (occurrence: TW)
  Receive Date: 20220906
  Receipt Date: 20220916
  Transmission Date: 20221027
  Serious: Yes (Hospitalization, Other)
  Sender: FDA-Public Use
  Company Number: TW-SUN PHARMACEUTICAL INDUSTRIES LTD-2022RR-353091

PATIENT
  Age: 62 Year
  Sex: Male

DRUGS (8)
  1. ARIPIPRAZOLE [Suspect]
     Active Substance: ARIPIPRAZOLE
     Indication: Delusion of grandeur
     Dosage: UNK
     Route: 065
  2. ARIPIPRAZOLE [Suspect]
     Active Substance: ARIPIPRAZOLE
     Indication: Aggression
  3. LORAZEPAM [Suspect]
     Active Substance: LORAZEPAM
     Indication: Delusion of grandeur
     Dosage: UNK
     Route: 065
  4. LORAZEPAM [Suspect]
     Active Substance: LORAZEPAM
     Indication: Aggression
  5. VALPROIC ACID [Suspect]
     Active Substance: VALPROIC ACID
     Indication: Delusion of grandeur
     Dosage: UNK
     Route: 065
  6. VALPROIC ACID [Suspect]
     Active Substance: VALPROIC ACID
     Indication: Aggression
  7. ESTAZOLAM [Suspect]
     Active Substance: ESTAZOLAM
     Indication: Delusion of grandeur
     Dosage: UNK
     Route: 065
  8. ESTAZOLAM [Suspect]
     Active Substance: ESTAZOLAM
     Indication: Aggression

REACTIONS (7)
  - Disorientation [Recovering/Resolving]
  - Disturbance in attention [Recovering/Resolving]
  - Somnolence [Recovering/Resolving]
  - Hypopnoea [Recovering/Resolving]
  - Pyrexia [Unknown]
  - Pneumonia aspiration [Recovering/Resolving]
  - Condition aggravated [Unknown]
